FAERS Safety Report 6649366-2 (Version None)
Quarter: 2010Q1

REPORT INFORMATION
  Report Type: 
  Country: None (occurrence: None)
  Receive Date: 20100322
  Receipt Date: 20100308
  Transmission Date: 20100710
  Serious: Yes (Death, Hospitalization)
  Sender: FDA-Public Use
  Company Number: KADN20100069

PATIENT
  Age: 44 Year
  Sex: Female

DRUGS (3)
  1. MORPHINE [Suspect]
     Indication: DRUG USE FOR UNKNOWN INDICATION
     Dosage: PER ORAL
     Route: 048
     Dates: end: 20080101
  2. TRAZODONE HCL [Suspect]
     Indication: DRUG USE FOR UNKNOWN INDICATION
     Dosage: PER ORAL
     Route: 048
     Dates: end: 20080101
  3. THC [Suspect]
     Dates: end: 20080101

REACTIONS (7)
  - BODY TEMPERATURE INCREASED [None]
  - COMPLETED SUICIDE [None]
  - HYPOTENSION [None]
  - PUPIL FIXED [None]
  - SELF-MEDICATION [None]
  - TACHYCARDIA [None]
  - UNRESPONSIVE TO STIMULI [None]
